FAERS Safety Report 23066385 (Version 1)
Quarter: 2023Q4

REPORT INFORMATION
  Report Type: Spontaneous
  Country: CA (occurrence: CA)
  Receive Date: 20231015
  Receipt Date: 20231015
  Transmission Date: 20240110
  Serious: Yes (Other)
  Sender: FDA-Public Use
  Company Number: CA-TEVA-2023-CA-2935983

PATIENT
  Sex: Male

DRUGS (2)
  1. PREDNISONE [Suspect]
     Active Substance: PREDNISONE
     Indication: Granulomatosis with polyangiitis
     Route: 065
     Dates: start: 20230804
  2. METHOTREXATE [Suspect]
     Active Substance: METHOTREXATE
     Indication: Granulomatosis with polyangiitis
     Dosage: 20 MILLIGRAM DAILY;
     Route: 065
     Dates: start: 20230804

REACTIONS (7)
  - Haematuria [Unknown]
  - Orchitis [Unknown]
  - Nasal septum ulceration [Unknown]
  - Episcleritis [Unknown]
  - Skin ulcer [Unknown]
  - Mononeuropathy multiplex [Unknown]
  - Peroneal nerve palsy [Unknown]

NARRATIVE: CASE EVENT DATE: 20230101
